FAERS Safety Report 10185201 (Version 1)
Quarter: 2014Q2

REPORT INFORMATION
  Report Type: Spontaneous
  Country: US (occurrence: US)
  Receive Date: 20140521
  Receipt Date: 20140521
  Transmission Date: 20141212
  Serious: Yes (Hospitalization)
  Sender: FDA-Public Use
  Company Number: US-ASTRAZENECA-2014SE33424

PATIENT
  Age: 57 Year
  Sex: Female
  Weight: 74.8 kg

DRUGS (15)
  1. SEROQUEL [Suspect]
     Indication: BIPOLAR DISORDER
     Route: 048
     Dates: start: 2008
  2. SEROQUEL [Suspect]
     Indication: DEPRESSION
     Route: 048
     Dates: start: 2008
  3. SEROQUEL [Suspect]
     Indication: BIPOLAR DISORDER
     Dosage: QUETIAPINE FUMERATE
     Route: 048
  4. SEROQUEL [Suspect]
     Indication: DEPRESSION
     Dosage: QUETIAPINE FUMERATE
     Route: 048
  5. SEROQUEL [Suspect]
     Indication: BIPOLAR DISORDER
     Dosage: QUETIAPINE FUMERATE, 600 MG AT NIGHT
     Route: 048
  6. SEROQUEL [Suspect]
     Indication: DEPRESSION
     Dosage: QUETIAPINE FUMERATE, 600 MG AT NIGHT
     Route: 048
  7. SEROQUEL [Suspect]
     Indication: BIPOLAR DISORDER
     Dosage: QUETIAPINE FUMERATE, CUTTING DOWN HER DOSE
     Route: 048
  8. SEROQUEL [Suspect]
     Indication: DEPRESSION
     Dosage: QUETIAPINE FUMERATE, CUTTING DOWN HER DOSE
     Route: 048
  9. KLONOPIN [Concomitant]
     Indication: BIPOLAR I DISORDER
     Route: 048
     Dates: start: 201312
  10. REMERON [Concomitant]
     Indication: BIPOLAR I DISORDER
     Route: 048
     Dates: start: 201312
  11. ZOLOFT [Concomitant]
     Indication: BIPOLAR I DISORDER
     Route: 048
     Dates: start: 201312
  12. RESTERIL [Concomitant]
     Indication: SLEEP DISORDER
     Route: 048
  13. VITAMIN D [Concomitant]
     Indication: SUPPLEMENTATION THERAPY
     Dosage: 10,000 UNITS MON-FRI DAILY
     Route: 048
  14. TRAMADOL [Concomitant]
     Indication: FIBROMYALGIA
     Route: 048
     Dates: start: 2012
  15. BENZTROPINE [Concomitant]

REACTIONS (9)
  - Mental disorder [Unknown]
  - Amnesia [Recovered/Resolved with Sequelae]
  - Pain in extremity [Unknown]
  - Limb discomfort [Unknown]
  - Hypoaesthesia [Unknown]
  - Fibromyalgia [Unknown]
  - Muscle spasms [Unknown]
  - Dyskinesia [Unknown]
  - Drug dose omission [Unknown]
